FAERS Safety Report 14066644 (Version 1)
Quarter: 2017Q4

REPORT INFORMATION
  Report Type: Spontaneous
  Country: US (occurrence: US)
  Receive Date: 20171006
  Receipt Date: 20171006
  Transmission Date: 20180321
  Serious: Yes (Other)
  Sender: FDA-Public Use
  Company Number: None

PATIENT
  Age: 81 Year
  Sex: Male
  Weight: 63.9 kg

DRUGS (5)
  1. VITAMIN C [Concomitant]
     Active Substance: ASCORBIC ACID
  2. VITAMIN D [Concomitant]
     Active Substance: CHOLECALCIFEROL
  3. PREDNISONE. [Concomitant]
     Active Substance: PREDNISONE
  4. ZYTIGA [Suspect]
     Active Substance: ABIRATERONE ACETATE
     Indication: PROSTATE CANCER
     Dosage: ?          QUANTITY:4 TABLET(S);?
     Route: 048
     Dates: start: 20170715, end: 20171005
  5. CALCIUM [Concomitant]
     Active Substance: CALCIUM

REACTIONS (2)
  - Headache [None]
  - Pain in jaw [None]

NARRATIVE: CASE EVENT DATE: 20170815
